FAERS Safety Report 4272975-5 (Version None)
Quarter: 2004Q1

REPORT INFORMATION
  Report Type: 
  Country: None (occurrence: None)
  Receive Date: 20040116
  Receipt Date: 20040112
  Transmission Date: 20041129
  Serious: Yes (Hospitalization)
  Sender: FDA-Public Use
  Company Number: 200410265US

PATIENT
  Sex: Female
  Weight: 52.7 kg

DRUGS (3)
  1. LOVENOX [Suspect]
     Indication: CARDIAC VALVE DISEASE
     Route: 051
     Dates: start: 20020401
  2. COUMADIN [Concomitant]
     Dosage: DOSE: UNK
  3. UNKNOWN DRUG [Concomitant]
     Dosage: DOSE: UNK

REACTIONS (1)
  - CEREBROVASCULAR ACCIDENT [None]
